FAERS Safety Report 20611419 (Version 1)
Quarter: 2022Q1

REPORT INFORMATION
  Report Type: Spontaneous
  Country: US (occurrence: US)
  Receive Date: 20220318
  Receipt Date: 20220318
  Transmission Date: 20220423
  Serious: Yes (Hospitalization, Other)
  Sender: FDA-Public Use
  Company Number: US-Millicent Holdings Ltd.-MILL20220088

PATIENT
  Sex: Female

DRUGS (1)
  1. INTRAROSA [Suspect]
     Active Substance: PRASTERONE
     Indication: Vulvovaginal dryness
     Dosage: 6.5 MG
     Route: 067
     Dates: start: 2020

REACTIONS (5)
  - Hepatic failure [Unknown]
  - Condition aggravated [Unknown]
  - Off label use [Unknown]
  - Product dose omission issue [Unknown]
  - Product packaging issue [Unknown]
